FAERS Safety Report 22240570 (Version 1)
Quarter: 2023Q2

REPORT INFORMATION
  Report Type: Spontaneous
  Country: US (occurrence: None)
  Receive Date: 20230421
  Receipt Date: 20230421
  Transmission Date: 20230721
  Serious: Yes (Hospitalization)
  Sender: FDA-Public Use
  Company Number: None

PATIENT
  Age: 76 Year
  Sex: Male
  Weight: 80.41 kg

DRUGS (1)
  1. BREYANZI [Suspect]
     Active Substance: LISOCABTAGENE MARALEUCEL
     Indication: Diffuse large B-cell lymphoma
     Dates: start: 20230109, end: 20230109

REACTIONS (4)
  - Cytokine release syndrome [None]
  - Confusional state [None]
  - Vitreous floaters [None]
  - Exhibitionism [None]

NARRATIVE: CASE EVENT DATE: 20230112
